FAERS Safety Report 24676610 (Version 2)
Quarter: 2025Q3

REPORT INFORMATION
  Report Type: Spontaneous
  Country: US (occurrence: US)
  Receive Date: 20241128
  Receipt Date: 20250810
  Transmission Date: 20251020
  Serious: Yes (Hospitalization, Other)
  Sender: ALEXION PHARMACEUTICALS
  Company Number: US-ASTRAZENECA-202411USA017479US

PATIENT
  Sex: Female

DRUGS (5)
  1. FASLODEX [Suspect]
     Active Substance: FULVESTRANT
  2. FASLODEX [Suspect]
     Active Substance: FULVESTRANT
  3. PALBOCICLIB [Suspect]
     Active Substance: PALBOCICLIB
     Indication: Breast cancer female
  4. PALBOCICLIB [Suspect]
     Active Substance: PALBOCICLIB
     Indication: Bone cancer
  5. OXYCODONE [Suspect]
     Active Substance: OXYCODONE
     Route: 065

REACTIONS (10)
  - Acute kidney injury [Unknown]
  - Encephalopathy [Unknown]
  - Anaemia vitamin B12 deficiency [Unknown]
  - Pancytopenia [Unknown]
  - Osteoarthritis [Unknown]
  - Neutropenia [Unknown]
  - Fatigue [Unknown]
  - Limb discomfort [Unknown]
  - Hallucination [Unknown]
  - Compression fracture [Unknown]
